FAERS Safety Report 5890254-7 (Version None)
Quarter: 2008Q3

REPORT INFORMATION
  Report Type: 
  Country: None (occurrence: None)
  Receive Date: 20080919
  Receipt Date: 20080908
  Transmission Date: 20090109
  Serious: Yes (Hospitalization)
  Sender: FDA-Public Use
  Company Number: TR-PFIZER INC-2008076688

PATIENT
  Age: 58 Year
  Sex: Female

DRUGS (1)
  1. HEPARIN SODIUM [Suspect]
     Route: 042

REACTIONS (1)
  - INTRACARDIAC THROMBUS [None]
